FAERS Safety Report 9742535 (Version 2)
Quarter: 2013Q4

REPORT INFORMATION
  Report Type: Report from Study
  Country: AU (occurrence: AU)
  Receive Date: 20131210
  Receipt Date: 20131210
  Transmission Date: 20140711
  Serious: Yes (Other)
  Sender: FDA-Public Use
  Company Number: PHHY2013AU119160

PATIENT
  Sex: Female

DRUGS (3)
  1. ACLASTA [Suspect]
     Dosage: 5 MG, UNK
     Route: 042
     Dates: start: 20121010
  2. CRESTOR [Concomitant]
     Indication: HYPERCHOLESTEROLAEMIA
     Dosage: 1 DF, DAILY
     Route: 048
     Dates: start: 20130408
  3. VENTOLIN                           /00942701/ [Concomitant]
     Dosage: UNK UKN (2 PUFFS), BID

REACTIONS (2)
  - Carpal tunnel syndrome [Recovered/Resolved]
  - Vomiting [Recovered/Resolved]
